FAERS Safety Report 6416536-8 (Version None)
Quarter: 2009Q4

REPORT INFORMATION
  Report Type: 
  Country: None (occurrence: None)
  Receive Date: 20091027
  Receipt Date: 20091014
  Transmission Date: 20100525
  Serious: Yes (Other)
  Sender: FDA-Public Use
  Company Number: PHHY2009BR44891

PATIENT
  Age: 86 Year
  Sex: Female
  Weight: 48 kg

DRUGS (4)
  1. EXFORGE [Suspect]
     Indication: HYPERTENSION
     Dosage: 1 TABLET (160/5 MG) DAILY AFTER THE BREAKFAST
     Route: 048
  2. CAPTOPRIL [Concomitant]
     Route: 060
  3. MEMANTINE HCL [Concomitant]
     Dosage: 10 MG, Q12H
  4. PROLOPA [Concomitant]
     Dosage: 50/200 MG TID

REACTIONS (8)
  - BLOOD PRESSURE DECREASED [None]
  - BLOOD PRESSURE FLUCTUATION [None]
  - BLOOD PRESSURE INCREASED [None]
  - DEMENTIA ALZHEIMER'S TYPE [None]
  - GAIT DISTURBANCE [None]
  - INCORRECT DOSE ADMINISTERED [None]
  - PARKINSON'S DISEASE [None]
  - PSYCHOMOTOR HYPERACTIVITY [None]
